FAERS Safety Report 6258031-5 (Version None)
Quarter: 2009Q3

REPORT INFORMATION
  Report Type: 
  Country: None (occurrence: None)
  Receive Date: 20090707
  Receipt Date: 20090625
  Transmission Date: 20100115
  Serious: Yes (Other)
  Sender: FDA-Public Use
  Company Number: US-BAYER-200924974NA

PATIENT
  Age: 43 Year
  Sex: Female
  Weight: 61 kg

DRUGS (3)
  1. BETASERON [Suspect]
     Indication: RELAPSING-REMITTING MULTIPLE SCLEROSIS
     Dosage: TOTAL DAILY DOSE: 8 MIU
     Route: 058
     Dates: start: 20060515, end: 20090618
  2. SYNTHROID [Concomitant]
     Dosage: TOTAL DAILY DOSE: 150 ?G
  3. BACLOFEN [Concomitant]

REACTIONS (5)
  - CONDITION AGGRAVATED [None]
  - HEPATITIS D [None]
  - HYPOAESTHESIA [None]
  - MULTIPLE SCLEROSIS [None]
  - VISION BLURRED [None]
